FAERS Safety Report 4837715-7 (Version None)
Quarter: 2005Q4

REPORT INFORMATION
  Report Type: 
  Country: None (occurrence: None)
  Receive Date: 20051024
  Receipt Date: 20050713
  Transmission Date: 20060501
  Serious: No
  Sender: FDA-Public Use
  Company Number: 216080

PATIENT
  Age: 13 Year
  Sex: Male

DRUGS (1)
  1. XOLAIR [Suspect]
     Indication: ASTHMA
     Dosage: Q2W

REACTIONS (1)
  - RASH [None]
